FAERS Safety Report 9066379 (Version 1)
Quarter: 2013Q1

REPORT INFORMATION
  Report Type: Report from Study
  Country: US (occurrence: US)
  Receive Date: 20130131
  Receipt Date: 20130131
  Transmission Date: 20140127
  Serious: No
  Sender: FDA-Public Use
  Company Number: US-ABBOTT-12P-163-1009111-00

PATIENT
  Age: 68 Year
  Sex: Male

DRUGS (13)
  1. HUMIRA [Suspect]
     Indication: CROHN^S DISEASE
     Dates: start: 20120815
  2. ENTOCORT [Concomitant]
     Indication: CROHN^S DISEASE
     Dosage: 3MG 3 PILLS DAILY
     Route: 048
  3. AZATHIOPRINE [Concomitant]
     Indication: CROHN^S DISEASE
     Dosage: 50MG 2 TABLETS BY MOUTH DAILY
     Route: 048
  4. AMLODIPINE [Concomitant]
     Indication: BLOOD PRESSURE
     Dosage: DAILY
     Route: 048
  5. IRON [Concomitant]
     Indication: ANAEMIA
     Dosage: DAILY
     Route: 048
  6. ASPIRIN [Concomitant]
     Indication: PRODUCT USED FOR UNKNOWN INDICATION
     Dosage: 325MG HALF TABLET DAILY
     Route: 048
  7. FAMOTIDINE [Concomitant]
     Indication: GASTRIC PH INCREASED
     Dosage: DAILY
  8. LISINOPRIL/HCTZ [Concomitant]
     Indication: BLOOD PRESSURE
     Dosage: 20/25MG; DAILY
     Route: 048
  9. LANTUS [Concomitant]
     Indication: DIABETES MELLITUS
     Dosage: AT NIGHT
  10. APIDRA [Concomitant]
     Indication: PRODUCT USED FOR UNKNOWN INDICATION
     Dosage: UNITS VARY DEPENDING ON BLOOD SUGAR LEVEL AND MEAL PLANNED
  11. CHOLESTYRAMINE [Concomitant]
     Indication: GASTROINTESTINAL DISORDER
     Dosage: WHEN ON LONG CAR OR PLANE RIDE
  12. FISH OIL [Concomitant]
     Indication: SUPPLEMENTATION THERAPY
     Dosage: OVER THE COUNTER, TAKES DAILY
  13. B12 [Concomitant]
     Indication: PRODUCT USED FOR UNKNOWN INDICATION
     Dosage: MONTHLY
     Route: 030

REACTIONS (2)
  - Therapeutic response unexpected [Recovered/Resolved]
  - Injection site pain [Recovered/Resolved]
